FAERS Safety Report 9567127 (Version 1)
Quarter: 2013Q3

REPORT INFORMATION
  Report Type: Spontaneous
  Country: US (occurrence: US)
  Receive Date: 20130930
  Receipt Date: 20130930
  Transmission Date: 20140515
  Serious: No
  Sender: FDA-Public Use
  Company Number: US-AMGEN-USASP2012062198

PATIENT
  Sex: Female
  Weight: 90.25 kg

DRUGS (8)
  1. ENBREL [Suspect]
     Indication: RHEUMATOID ARTHRITIS
     Dosage: 50 MG/ML, QWK
     Route: 058
  2. OXYCONTIN [Concomitant]
     Dosage: 10 MG, UNK
  3. SPIRONOLACTONE [Concomitant]
     Dosage: 100 MG, UNK
  4. PREDNISONE [Concomitant]
     Dosage: 10 MG, UNK
  5. ALEVE [Concomitant]
     Dosage: 220 MG, UNK
  6. BIOTIN [Concomitant]
     Dosage: 5000 UNK, UNK
  7. CALCIUM MAGNESIUM [Concomitant]
     Dosage: UNK
  8. ZINC [Concomitant]
     Dosage: 30 MG, UNK

REACTIONS (3)
  - Fatigue [Unknown]
  - Headache [Unknown]
  - Hypersensitivity [Unknown]
